FAERS Safety Report 21749685 (Version 1)
Quarter: 2022Q4

REPORT INFORMATION
  Report Type: Spontaneous
  Country: US (occurrence: US)
  Receive Date: 20221219
  Receipt Date: 20221219
  Transmission Date: 20230112
  Serious: Yes (Other)
  Sender: FDA-Public Use
  Company Number: US-ALLERGAN-2241421US

PATIENT
  Sex: Female

DRUGS (3)
  1. LINZESS [Suspect]
     Active Substance: LINACLOTIDE
     Indication: Product used for unknown indication
     Dosage: UNK, QD
     Dates: start: 202211
  2. LINZESS [Suspect]
     Active Substance: LINACLOTIDE
     Dosage: UNK, QOD
     Dates: start: 2021
  3. LINZESS [Suspect]
     Active Substance: LINACLOTIDE
     Dosage: UNK UNK, QD
     Dates: start: 2012

REACTIONS (8)
  - Intestinal resection [Unknown]
  - Nephrectomy [Unknown]
  - Partial cystectomy [Unknown]
  - Weight decreased [Unknown]
  - Scar [Unknown]
  - Scar excision [Unknown]
  - Constipation [Unknown]
  - Therapeutic response decreased [Unknown]
